FAERS Safety Report 9825799 (Version 1)
Quarter: 2014Q1

REPORT INFORMATION
  Report Type: Spontaneous
  Country: CA (occurrence: CA)
  Receive Date: 20140117
  Receipt Date: 20140117
  Transmission Date: 20141002
  Serious: Yes (Hospitalization)
  Sender: FDA-Public Use
  Company Number: CA-BAYER-2014-007573

PATIENT
  Age: 73 Year
  Sex: Female
  Weight: 59.09 kg

DRUGS (5)
  1. AVELOX [Suspect]
     Dosage: 400 MG, QD
     Route: 048
  2. ADVAIR [Concomitant]
  3. MONTELUKAST [Concomitant]
  4. PREDNISONE [Concomitant]
  5. SALBUTAMOL [Concomitant]

REACTIONS (10)
  - Abasia [Not Recovered/Not Resolved]
  - Decreased appetite [Not Recovered/Not Resolved]
  - Erythema of eyelid [Not Recovered/Not Resolved]
  - Eyelid oedema [Not Recovered/Not Resolved]
  - Head discomfort [Not Recovered/Not Resolved]
  - Insomnia [Not Recovered/Not Resolved]
  - Joint swelling [Not Recovered/Not Resolved]
  - Oral pain [Not Recovered/Not Resolved]
  - Tongue exfoliation [Not Recovered/Not Resolved]
  - Urticaria [Not Recovered/Not Resolved]
